FAERS Safety Report 8622054 (Version 2)
Quarter: 2013Q2

REPORT INFORMATION
  Report Type: Spontaneous
  Country: JP (occurrence: JP)
  Receive Date: 20120619
  Receipt Date: 20130418
  Transmission Date: 20140414
  Serious: Yes (Life-Threatening, Other)
  Sender: FDA-Public Use
  Company Number: PHHY2012JP051506

PATIENT
  Age: 58 Year
  Sex: Female

DRUGS (8)
  1. FOLINIC ACID [Suspect]
     Indication: COLON CANCER
     Dosage: 70 %
     Dates: start: 201006
  2. FOLINIC ACID [Suspect]
     Indication: OVARIAN CANCER METASTATIC
     Dosage: 60 %
     Dates: start: 201006
  3. FLUOROURACIL [Suspect]
     Indication: METASTASES TO OVARY
     Dosage: 70 %
     Dates: start: 201006
  4. FLUOROURACIL [Suspect]
     Indication: COLON CANCER
     Dosage: 60 %
     Dates: start: 201006
  5. CISPLATIN [Suspect]
     Indication: COLON CANCER
  6. IRINOTECAN [Suspect]
     Indication: METASTASES TO OVARY
     Dosage: 70 %
     Dates: start: 201006
  7. IRINOTECAN [Suspect]
     Dosage: 60 %
     Dates: start: 201006
  8. BEVACIZUMAB [Suspect]
     Indication: METASTASES TO OVARY

REACTIONS (3)
  - Neutropenia [Recovering/Resolving]
  - Haemoglobin decreased [Unknown]
  - Colon cancer metastatic [Unknown]
